FAERS Safety Report 4521300-0 (Version None)
Quarter: 2004Q4

REPORT INFORMATION
  Report Type: 
  Country: None (occurrence: None)
  Receive Date: 20041203
  Receipt Date: 20041126
  Transmission Date: 20050328
  Serious: Yes (Life-Threatening, Hospitalization, Other)
  Sender: FDA-Public Use
  Company Number: 2004-10-0829

PATIENT
  Age: 67 Year
  Sex: Male
  Weight: 88.4514 kg

DRUGS (6)
  1. CLARINEX [Suspect]
     Indication: SEASONAL ALLERGY
     Dosage: 1 TAB DAILY ORAL
     Route: 048
     Dates: start: 20040601, end: 20041007
  2. LOSEC [Concomitant]
  3. TRIAZOLAM [Concomitant]
  4. HORMONES (NOS) [Concomitant]
  5. FLUNISOLIDE [Concomitant]
  6. DEMEROL [Concomitant]

REACTIONS (3)
  - GASTROINTESTINAL HAEMORRHAGE [None]
  - HAEMOGLOBIN DECREASED [None]
  - INTESTINAL STOMA SITE BLEEDING [None]
